FAERS Safety Report 5758185-0 (Version None)
Quarter: 2008Q2

REPORT INFORMATION
  Report Type: 
  Country: None (occurrence: None)
  Receive Date: 20080604
  Receipt Date: 20080527
  Transmission Date: 20081010
  Serious: Yes (Death, Other)
  Sender: FDA-Public Use
  Company Number: IN-BAXTER-2008BH005563

PATIENT
  Age: 61 Year
  Sex: Male
  Weight: 61 kg

DRUGS (4)
  1. DIANEAL [Suspect]
     Indication: PERITONEAL DIALYSIS
     Route: 033
     Dates: start: 20080501, end: 20080524
  2. DIANEAL [Suspect]
     Route: 033
     Dates: start: 20080501, end: 20080524
  3. DIANEAL [Suspect]
     Dosage: DOSE UNIT:UNKNOWN
     Route: 033
     Dates: start: 20061201, end: 20080501
  4. EPTOIN [Concomitant]
     Indication: DRUG USE FOR UNKNOWN INDICATION
     Route: 065
     Dates: start: 20061201

REACTIONS (2)
  - MYOCARDIAL ISCHAEMIA [None]
  - PERITONITIS [None]
